FAERS Safety Report 16813850 (Version 2)
Quarter: 2019Q3

REPORT INFORMATION
  Report Type: Spontaneous
  Country: PL (occurrence: PL)
  Receive Date: 20190917
  Receipt Date: 20190927
  Transmission Date: 20191005
  Serious: Yes (Death, Hospitalization, Other)
  Sender: FDA-Public Use
  Company Number: PL-AUROBINDO-AUR-APL-2019-060307

PATIENT
  Age: 55 Year
  Sex: Female

DRUGS (2)
  1. PARACETAMOL [Suspect]
     Active Substance: ACETAMINOPHEN
     Indication: PYREXIA
  2. PARACETAMOL [Suspect]
     Active Substance: ACETAMINOPHEN
     Indication: BODY TEMPERATURE INCREASED
     Dosage: SHE TOOK PARACETAMOL IN DOSES UP TO 4 G / DAY
     Route: 065

REACTIONS (4)
  - Drug-induced liver injury [Fatal]
  - Acute hepatic failure [Unknown]
  - Toxicity to various agents [Unknown]
  - Pyrexia [Unknown]
